FAERS Safety Report 8397702-1 (Version None)
Quarter: 2012Q2

REPORT INFORMATION
  Report Type: 
  Country: None (occurrence: None)
  Receive Date: 20120531
  Receipt Date: 20120523
  Transmission Date: 20120825
  Serious: Yes (Hospitalization, Other)
  Sender: FDA-Public Use
  Company Number: US-BAYER-2012-008433

PATIENT
  Age: 19 Year
  Sex: Female
  Weight: 75.283 kg

DRUGS (3)
  1. YASMIN [Suspect]
     Indication: CONTRACEPTION
     Dosage: UNK
     Route: 048
     Dates: start: 20051026, end: 20080317
  2. IBUPROFEN [Concomitant]
  3. YAZ [Suspect]
     Indication: CONTRACEPTION
     Dosage: UNK
     Route: 048
     Dates: start: 20080414, end: 20090802

REACTIONS (9)
  - ABDOMINAL PAIN UPPER [None]
  - NAUSEA [None]
  - CHOLECYSTITIS ACUTE [None]
  - GENERAL PHYSICAL HEALTH DETERIORATION [None]
  - MENTAL DISORDER [None]
  - PAIN [None]
  - ANXIETY [None]
  - GALLBLADDER INJURY [None]
  - EMOTIONAL DISTRESS [None]
